FAERS Safety Report 5113947-8 (Version None)
Quarter: 2006Q3

REPORT INFORMATION
  Report Type: 
  Country: None (occurrence: None)
  Receive Date: 20060920
  Receipt Date: 20060830
  Transmission Date: 20061208
  Serious: Yes (Death)
  Sender: FDA-Public Use
  Company Number: AU200609000358

PATIENT
  Age: 81 Year
  Sex: Female

DRUGS (4)
  1. XIGRIS [Suspect]
     Indication: SEPSIS
     Dates: start: 20060810
  2. EPINEPHRINE [Concomitant]
  3. NORADRENALINE (NOREPINEPHRINE) [Concomitant]
  4. VASOPRESSIN AND ANALOGUES [Concomitant]

REACTIONS (1)
  - MULTI-ORGAN FAILURE [None]
